FAERS Safety Report 21107123 (Version 1)
Quarter: 2022Q3

REPORT INFORMATION
  Report Type: Spontaneous
  Country: US (occurrence: US)
  Receive Date: 20220720
  Receipt Date: 20220720
  Transmission Date: 20221027
  Serious: No
  Sender: FDA-Public Use
  Company Number: US-INSUD PHARMA-2207US02752

PATIENT

DRUGS (1)
  1. SLYND [Suspect]
     Active Substance: DROSPIRENONE
     Indication: Contraception
     Dosage: 1, QD
     Route: 048
     Dates: start: 202204

REACTIONS (9)
  - Premenstrual syndrome [Not Recovered/Not Resolved]
  - Tension [Not Recovered/Not Resolved]
  - Anxiety [Not Recovered/Not Resolved]
  - Premenstrual pain [Not Recovered/Not Resolved]
  - Swelling [Not Recovered/Not Resolved]
  - Abdominal distension [Not Recovered/Not Resolved]
  - Fatigue [Not Recovered/Not Resolved]
  - Hot flush [Not Recovered/Not Resolved]
  - Food craving [Not Recovered/Not Resolved]

NARRATIVE: CASE EVENT DATE: 20220401
